FAERS Safety Report 5689879-3 (Version None)
Quarter: 2008Q1

REPORT INFORMATION
  Report Type: 
  Country: None (occurrence: None)
  Receive Date: 20080331
  Receipt Date: 20080331
  Transmission Date: 20080703
  Serious: Yes (Death, Life-Threatening, Hospitalization)
  Sender: FDA-Public Use
  Company Number: None

PATIENT
  Age: 62 Year
  Sex: Male

DRUGS (2)
  1. PACLITAXEL [Suspect]
     Indication: METASTATIC SQUAMOUS CELL CARCINOMA
     Dosage: 255 MG Q 3 WEEKS IV
     Route: 042
     Dates: start: 20070926, end: 20071107
  2. CARBOPLATIN [Suspect]
     Dosage: 695 Q3WEEKS IV DRIP
     Route: 041
     Dates: start: 20071017, end: 20071207

REACTIONS (7)
  - ACUTE RESPIRATORY FAILURE [None]
  - ANAEMIA [None]
  - FEBRILE NEUTROPENIA [None]
  - MYOCARDIAL INFARCTION [None]
  - PANCYTOPENIA [None]
  - PNEUMONIA [None]
  - SEPSIS [None]
